FAERS Safety Report 4747314-3 (Version None)
Quarter: 2005Q3

REPORT INFORMATION
  Report Type: 
  Country: None (occurrence: None)
  Receive Date: 20050815
  Receipt Date: 20050520
  Transmission Date: 20060218
  Serious: No
  Sender: FDA-Public Use
  Company Number: USA050597965

PATIENT
  Age: 53 Year
  Sex: Male

DRUGS (4)
  1. CIALIS [Suspect]
     Dosage: 20 MG
     Dates: start: 20050501
  2. S-ADENOSYLEMTHIONINE [Concomitant]
  3. GINKO BILOBA (GINKGO BILOBA) [Concomitant]
  4. MULTI-VITAMINS [Concomitant]

REACTIONS (2)
  - PALPITATIONS [None]
  - THERAPEUTIC RESPONSE DECREASED [None]
